FAERS Safety Report 5117282-3 (Version None)
Quarter: 2006Q3

REPORT INFORMATION
  Report Type: 
  Country: None (occurrence: None)
  Receive Date: 20060926
  Receipt Date: 20060911
  Transmission Date: 20061208
  Serious: Yes (Hospitalization)
  Sender: FDA-Public Use
  Company Number: 2006PV021035

PATIENT
  Age: 63 Year
  Sex: Female
  Weight: 97.977 kg

DRUGS (4)
  1. BYETTA [Suspect]
     Indication: DIABETES MELLITUS NON-INSULIN-DEPENDENT
     Dosage: SC
     Route: 058
     Dates: start: 20051201, end: 20060701
  2. METFORMIN [Concomitant]
  3. GLIPIZIDE [Concomitant]
  4. LANTUS [Concomitant]

REACTIONS (9)
  - ANOREXIA [None]
  - BLOOD GLUCOSE INCREASED [None]
  - DEHYDRATION [None]
  - FLUID INTAKE REDUCED [None]
  - GASTRITIS BACTERIAL [None]
  - GASTROINTESTINAL ULCER [None]
  - NAUSEA [None]
  - POLYDIPSIA [None]
  - RENAL DISORDER [None]
